FAERS Safety Report 7036860-8 (Version None)
Quarter: 2010Q4

REPORT INFORMATION
  Report Type: 
  Country: None (occurrence: None)
  Receive Date: 20101011
  Receipt Date: 20100929
  Transmission Date: 20110411
  Serious: Yes (Other)
  Sender: FDA-Public Use
  Company Number: US-JNJFOC-20100702744

PATIENT
  Sex: Female
  Weight: 82.56 kg

DRUGS (13)
  1. REMICADE [Suspect]
     Indication: RHEUMATOID ARTHRITIS
     Route: 042
  2. REMICADE [Suspect]
     Route: 042
  3. REMICADE [Suspect]
     Dosage: DOSE INCREASED ON UNKNOWN DATE AROUND APR-2010
     Route: 042
  4. REMICADE [Suspect]
     Route: 042
  5. REMICADE [Suspect]
     Route: 042
  6. REMICADE [Suspect]
     Route: 042
  7. CALCIUM [Concomitant]
     Indication: MEDICAL DIET
  8. VITAMIN D [Concomitant]
     Indication: MEDICAL DIET
  9. FISH OIL [Concomitant]
     Indication: MEDICAL DIET
  10. PREDNISONE [Concomitant]
     Indication: RHEUMATOID ARTHRITIS
  11. PIROXICAM [Concomitant]
     Indication: PAIN
  12. ACETAMINOPHEN [Concomitant]
     Indication: PREMEDICATION
  13. CLARITIN [Concomitant]
     Indication: PREMEDICATION
     Route: 048

REACTIONS (27)
  - ABDOMINAL DISTENSION [None]
  - ABDOMINAL PAIN UPPER [None]
  - APNOEA [None]
  - ARTHRALGIA [None]
  - ASTHENIA [None]
  - BLOOD DISORDER [None]
  - BLOOD IMMUNOGLOBULIN M DECREASED [None]
  - BLOOD PRESSURE INCREASED [None]
  - BODY TEMPERATURE INCREASED [None]
  - CHEST DISCOMFORT [None]
  - COUGH [None]
  - DIZZINESS [None]
  - DYSPNOEA [None]
  - EPISTAXIS [None]
  - FATIGUE [None]
  - FEELING COLD [None]
  - HEADACHE [None]
  - HERPES VIRUS INFECTION [None]
  - HOT FLUSH [None]
  - INSOMNIA [None]
  - NAUSEA [None]
  - PRURITUS [None]
  - RENAL PAIN [None]
  - RHEUMATOID ARTHRITIS [None]
  - SWELLING [None]
  - TRIGGER FINGER [None]
  - VISION BLURRED [None]
